FAERS Safety Report 5191899-2 (Version None)
Quarter: 2006Q4

REPORT INFORMATION
  Report Type: 
  Country: None (occurrence: None)
  Receive Date: 20061227
  Receipt Date: 20040128
  Transmission Date: 20070319
  Serious: Yes (Other)
  Sender: FDA-Public Use
  Company Number: PHBS2004BR01449

PATIENT
  Age: 65 Year
  Sex: Female
  Weight: 75 kg

DRUGS (5)
  1. TEGRETOL [Suspect]
     Indication: DEPRESSION
     Dosage: 1200 MG/DAY
     Route: 048
  2. TEGRETOL [Suspect]
     Dosage: 600 MG/DAY
     Route: 048
  3. LIVIAL [Concomitant]
     Indication: HORMONE REPLACEMENT THERAPY
  4. RIVOTRIL [Concomitant]
     Indication: SLEEP DISORDER
     Dates: end: 20030101
  5. LITHIUM CARBONATE [Concomitant]
     Indication: DEPRESSION

REACTIONS (11)
  - ASTHENIA [None]
  - CONDITION AGGRAVATED [None]
  - FATIGUE [None]
  - HEPATIC STEATOSIS [None]
  - HEPATITIS [None]
  - IMMUNE SYSTEM DISORDER [None]
  - PHARYNGITIS [None]
  - RHINITIS [None]
  - SEDATION [None]
  - SINUSITIS [None]
  - VAGINAL CANDIDIASIS [None]
